FAERS Safety Report 15849463 (Version 5)
Quarter: 2019Q1

REPORT INFORMATION
  Report Type: Report from Study
  Country: FR (occurrence: FR)
  Receive Date: 20190121
  Receipt Date: 20190313
  Transmission Date: 20190417
  Serious: Yes (Hospitalization)
  Sender: FDA-Public Use
  Company Number: FR-B.I. PHARMACEUTICALS,INC./RIDGEFIELD-2019-BI-001866

PATIENT
  Age: 67 Year
  Sex: Female
  Weight: 51 kg

DRUGS (3)
  1. NINTEDANIB [Suspect]
     Active Substance: NINTEDANIB
     Indication: ENDOMETRIAL CANCER
     Route: 048
     Dates: start: 20181101, end: 20190113
  2. CARBOPLATINE [Concomitant]
     Active Substance: CARBOPLATIN
     Indication: ENDOMETRIAL CANCER
     Dosage: DAILY DOSE: 1320
     Route: 042
     Dates: start: 20181031, end: 20181214
  3. CARBOPLATINE [Concomitant]
     Active Substance: CARBOPLATIN
     Dosage: DAILY DOSE: 460
     Route: 042
     Dates: start: 20190116

REACTIONS (2)
  - Vomiting [Recovered/Resolved]
  - Haematemesis [Recovered/Resolved]

NARRATIVE: CASE EVENT DATE: 20190113
